FAERS Safety Report 4724947-1 (Version None)
Quarter: 2005Q3

REPORT INFORMATION
  Report Type: 
  Country: None (occurrence: None)
  Receive Date: 20050722
  Receipt Date: 20050722
  Transmission Date: 20060218
  Serious: Yes (Hospitalization)
  Sender: FDA-Public Use
  Company Number: None

PATIENT
  Age: 45 Year
  Sex: Female

DRUGS (1)
  1. VITAMIN B-12 [Suspect]

REACTIONS (3)
  - CHEST DISCOMFORT [None]
  - FLUSHING [None]
  - THROAT TIGHTNESS [None]
